FAERS Safety Report 5226540-3 (Version None)
Quarter: 2007Q1

REPORT INFORMATION
  Report Type: 
  Country: None (occurrence: None)
  Receive Date: 20061201
  Receipt Date: 20060921
  Transmission Date: 20070707
  Serious: No
  Sender: FDA-Public Use
  Company Number: US200609005549

PATIENT
  Age: 57 Year
  Sex: Female
  Weight: 94.3 kg

DRUGS (1)
  1. CYMBALTA [Suspect]
     Dosage: SEE IMAGE

REACTIONS (1)
  - CHEST PAIN [None]
